FAERS Safety Report 8811320 (Version 2)
Quarter: 2012Q4

REPORT INFORMATION
  Report Type: 
  Country: US (occurrence: US)
  Receive Date: 20120927
  Receipt Date: 20121107
  Transmission Date: 20130627
  Serious: Yes (Other)
  Sender: FDA-Public Use
  Company Number: US-ELI_LILLY_AND_COMPANY-US201209004803

PATIENT
  Sex: Female

DRUGS (11)
  1. ZYPREXA [Suspect]
     Indication: BIPOLAR DISORDER
     Dosage: 10 mg, each evening
     Dates: end: 201107
  2. DEPAKOTE [Concomitant]
  3. SEROQUEL [Concomitant]
  4. CARVEDILOL [Concomitant]
     Dosage: 25 mg, UNK
  5. ISORDIL [Concomitant]
     Dosage: 1 DF, qd
  6. LISINOPRIL [Concomitant]
     Dosage: 30 mg, qd
  7. BUMETANIDE [Concomitant]
     Dosage: 1 mg, qd
  8. VISTARIL [Concomitant]
     Dosage: 25 mg, UNK
  9. COUMADIN [Concomitant]
     Dosage: 7.5 mg, UNK
  10. INSULIN [Concomitant]
     Dosage: 15 u, each evening
  11. NOVOLOG [Concomitant]
     Dosage: UNK, prn

REACTIONS (3)
  - Renal injury [Unknown]
  - Rhabdomyolysis [Recovered/Resolved]
  - Weight increased [Unknown]
